FAERS Safety Report 9734602 (Version 1)
Quarter: 2013Q4

REPORT INFORMATION
  Report Type: Report from Study
  Country: VE (occurrence: VE)
  Receive Date: 20131206
  Receipt Date: 20131206
  Transmission Date: 20140711
  Serious: Yes (Hospitalization)
  Sender: FDA-Public Use
  Company Number: VE-ROCHE-1311973

PATIENT
  Sex: Male
  Weight: 79 kg

DRUGS (1)
  1. RITUXIMAB [Suspect]
     Indication: RHEUMATOID ARTHRITIS
     Dosage: VIALS
     Route: 042

REACTIONS (3)
  - Respiratory distress [Unknown]
  - Cough [Unknown]
  - Flushing [Unknown]
